FAERS Safety Report 4309743-1 (Version None)
Quarter: 2004Q1

REPORT INFORMATION
  Report Type: 
  Country: None (occurrence: None)
  Receive Date: 20040301
  Receipt Date: 20040217
  Transmission Date: 20041129
  Serious: Yes (Hospitalization, Other)
  Sender: FDA-Public Use
  Company Number: USA-2003-0009434

PATIENT
  Age: 39 Year
  Sex: Male
  Weight: 96.6 kg

DRUGS (14)
  1. OXYCONTIN [Suspect]
     Indication: PAIN
     Dosage: SEE IMAGE
     Route: 048
     Dates: start: 20010101
  2. SOMA [Concomitant]
  3. AMOXICILLIN [Concomitant]
  4. RYNATAN (PHENYLEPHRINE TANNATE, MEPYRAMINE TANNATE, CHLORPHENAMINE TEN [Concomitant]
  5. GARLIC (GARLIC) [Concomitant]
  6. SALMON PILLS [Concomitant]
  7. CALCIUM [Concomitant]
  8. CLONAZEPAM [Concomitant]
  9. CODEINE [Concomitant]
  10. PREDNISONE [Interacting]
  11. CENTRUM (MINERALS NOS, VITAMINS NOS) [Concomitant]
  12. ASPIRIN [Concomitant]
  13. LORAZEPAM [Concomitant]
  14. NICOTINE [Concomitant]

REACTIONS (33)
  - ANXIETY [None]
  - BRONCHOSCOPY ABNORMAL [None]
  - CARCINOMA [None]
  - CHEST PAIN [None]
  - CHRONIC SINUSITIS [None]
  - COUGH [None]
  - CREPITATIONS [None]
  - DECREASED APPETITE [None]
  - DEPRESSION [None]
  - DRUG DEPENDENCE [None]
  - DRUG EFFECT DECREASED [None]
  - DRUG WITHDRAWAL SYNDROME [None]
  - FIBROSIS [None]
  - HAEMOPTYSIS [None]
  - INTERSTITIAL LUNG DISEASE [None]
  - IRRITABILITY [None]
  - LUNG CYST BENIGN [None]
  - LUNG INFILTRATION [None]
  - MEDICATION ERROR [None]
  - MOOD SWINGS [None]
  - NASAL TURBINATE ABNORMALITY [None]
  - NIGHTMARE [None]
  - PAIN [None]
  - PAIN IN EXTREMITY [None]
  - PANIC ATTACK [None]
  - PNEUMONIA [None]
  - POLYP [None]
  - POST-TRAUMATIC STRESS DISORDER [None]
  - RASH [None]
  - RHINORRHOEA [None]
  - SINUS DISORDER [None]
  - VARICOCELE [None]
  - WHITE BLOOD CELL COUNT INCREASED [None]
